FAERS Safety Report 26143193 (Version 3)
Quarter: 2025Q4

REPORT INFORMATION
  Report Type: Report from Study
  Country: US (occurrence: US)
  Receive Date: 20251211
  Receipt Date: 20251231
  Transmission Date: 20260118
  Serious: Yes (Other)
  Sender: ACADIA PHARMACEUTICALS
  Company Number: US-ACADIA PHARMACEUTICALS INC.-ACA-2025-PIM-013043

PATIENT
  Age: 73 Year
  Sex: Female

DRUGS (16)
  1. NUPLAZID [Suspect]
     Active Substance: PIMAVANSERIN TARTRATE
     Indication: Parkinson^s disease psychosis
     Dosage: 34 MILLIGRAM, QD-AT BEDTIME
     Route: 048
     Dates: start: 20251107
  2. KETOCONAZOLE [Concomitant]
     Active Substance: KETOCONAZOLE
  3. TRIAMCINOLONE ACETONIDE [Concomitant]
     Active Substance: TRIAMCINOLONE ACETONIDE
  4. ASPIRIN [Concomitant]
     Active Substance: ASPIRIN
     Dosage: CHEWABLE
  5. SEROQUEL [Concomitant]
     Active Substance: QUETIAPINE FUMARATE
  6. SENNA S [Concomitant]
     Active Substance: DOCUSATE SODIUM\SENNOSIDES
     Dosage: UNK
  7. CARBIDOPA\ENTACAPONE\LEVODOPA [Concomitant]
     Active Substance: CARBIDOPA\ENTACAPONE\LEVODOPA
  8. VITAMIN C [Concomitant]
     Active Substance: ASCORBIC ACID
  9. CALCIUM\CHOLECALCIFEROL [Concomitant]
     Active Substance: CALCIUM\CHOLECALCIFEROL
  10. MUPIROCIN [Concomitant]
     Active Substance: MUPIROCIN
  11. NADIDE [Concomitant]
     Active Substance: NADIDE
  12. ATORVASTATIN CALCIUM [Concomitant]
     Active Substance: ATORVASTATIN CALCIUM
  13. ATENOLOL [Concomitant]
     Active Substance: ATENOLOL
  14. MULTIVITAMIN [ASCORBIC ACID;CALCIUM CARBONATE;CYANOCOBALAMIN;NICOTINAM [Concomitant]
  15. LISINOPRIL [Concomitant]
     Active Substance: LISINOPRIL
  16. TOTAL BEETS [Concomitant]

REACTIONS (3)
  - Hallucination [Not Recovered/Not Resolved]
  - Erythema [Not Recovered/Not Resolved]
  - Drug ineffective [Not Recovered/Not Resolved]

NARRATIVE: CASE EVENT DATE: 20251107
